FAERS Safety Report 5887509-9 (Version None)
Quarter: 2008Q3

REPORT INFORMATION
  Report Type: 
  Country: None (occurrence: None)
  Receive Date: 20080917
  Receipt Date: 20080917
  Transmission Date: 20090109
  Serious: Yes (Hospitalization)
  Sender: FDA-Public Use
  Company Number: None

PATIENT
  Age: 76 Year
  Sex: Male
  Weight: 83.4 kg

DRUGS (1)
  1. SIMVASTATIN [Suspect]
     Indication: HYPERLIPIDAEMIA
     Dosage: 10 MG HS PO
     Route: 048
     Dates: start: 20050224, end: 20080822

REACTIONS (3)
  - HYPOPHAGIA [None]
  - LETHARGY [None]
  - RHABDOMYOLYSIS [None]
